FAERS Safety Report 6638669-3 (Version None)
Quarter: 2010Q1

REPORT INFORMATION
  Report Type: 
  Country: None (occurrence: None)
  Receive Date: 20100312
  Receipt Date: 20100226
  Transmission Date: 20100710
  Serious: Yes (Other)
  Sender: FDA-Public Use
  Company Number: 220004J10IRL

PATIENT
  Age: 16 Year
  Sex: Female

DRUGS (1)
  1. SAIZEN [Suspect]
     Dosage: 0.6 MG
     Dates: start: 20100212

REACTIONS (5)
  - CONVULSION [None]
  - DRUG HYPERSENSITIVITY [None]
  - HEADACHE [None]
  - MALAISE [None]
  - VOMITING [None]
